FAERS Safety Report 12720808 (Version 1)
Quarter: 2016Q3

REPORT INFORMATION
  Report Type: Other
  Country: US (occurrence: US)
  Receive Date: 20160907
  Receipt Date: 20160907
  Transmission Date: 20161109
  Serious: No
  Sender: FDA-Public Use
  Company Number: US-COL_20577_2015

PATIENT
  Sex: Female

DRUGS (3)
  1. COLGATE TOTAL WHITENING GEL [Suspect]
     Active Substance: SODIUM FLUORIDE\TRICLOSAN
     Indication: PRODUCT USED FOR UNKNOWN INDICATION
     Dosage: COVERED THE SMALL HEAD OF HER ORAL B TOOTHBRUSH/BID OR TID/
     Route: 048
  2. COLGATE ENAMEL HEALTH WHITENING [Suspect]
     Active Substance: SODIUM FLUORIDE
     Indication: PRODUCT USED FOR UNKNOWN INDICATION
     Dosage: NI/NI/
     Route: 048
  3. COLGATE TOTAL WHITENING GEL [Suspect]
     Active Substance: SODIUM FLUORIDE\TRICLOSAN
     Dosage: COVERED THE SMALL HEAD OF HER ORAL B TOOTHBRUSH/BID OR TID/
     Route: 048
     Dates: start: 201506

REACTIONS (4)
  - Stomatitis [Not Recovered/Not Resolved]
  - Angular cheilitis [Not Recovered/Not Resolved]
  - Similar reaction on previous exposure to drug [None]
  - No reaction on previous exposure to drug [None]

NARRATIVE: CASE EVENT DATE: 2015
